FAERS Safety Report 6495345-8 (Version None)
Quarter: 2009Q4

REPORT INFORMATION
  Report Type: 
  Country: None (occurrence: None)
  Receive Date: 20091214
  Receipt Date: 20090603
  Transmission Date: 20100525
  Serious: No
  Sender: FDA-Public Use
  Company Number: US-BRISTOL-MYERS SQUIBB COMPANY-14650527

PATIENT
  Sex: Male

DRUGS (2)
  1. ABILIFY [Suspect]
     Indication: OPPOSITIONAL DEFIANT DISORDER
     Dosage: INITAILLY INCREASED BY 2.5MG TO 7.5MG LATER DECREASED TO 5MG QD
  2. ABILIFY [Suspect]
     Indication: CONDUCT DISORDER
     Dosage: INITAILLY INCREASED BY 2.5MG TO 7.5MG LATER DECREASED TO 5MG QD

REACTIONS (3)
  - ANGER [None]
  - DYSKINESIA [None]
  - TREMOR [None]
